FAERS Safety Report 24328714 (Version 1)
Quarter: 2024Q3

REPORT INFORMATION
  Report Type: Report from Study
  Country: ZA (occurrence: ZA)
  Receive Date: 20240917
  Receipt Date: 20240917
  Transmission Date: 20241017
  Serious: Yes (Death)
  Sender: BIOVITRUM
  Company Number: ZA-AstraZeneca-2024A209764

PATIENT
  Age: 171 Day
  Sex: Male

DRUGS (1)
  1. SYNAGIS [Suspect]
     Active Substance: PALIVIZUMAB
     Indication: Respiratory syncytial virus infection
     Route: 030
     Dates: start: 20240522

REACTIONS (1)
  - Death [Fatal]

NARRATIVE: CASE EVENT DATE: 20240910
